FAERS Safety Report 6288564-7 (Version None)
Quarter: 2009Q3

REPORT INFORMATION
  Report Type: 
  Country: None (occurrence: None)
  Receive Date: 20090729
  Receipt Date: 20090720
  Transmission Date: 20100115
  Serious: Yes (Hospitalization)
  Sender: FDA-Public Use
  Company Number: TR-ELI_LILLY_AND_COMPANY-TR200907004010

PATIENT
  Age: 68 Year
  Sex: Female

DRUGS (5)
  1. HUMALOG MIX 75/25 [Suspect]
     Indication: DIABETES MELLITUS
     Dosage: 25 IU, EACH MORNING
     Route: 058
     Dates: start: 20070101
  2. HUMALOG MIX 75/25 [Suspect]
     Dosage: 14 IU, EACH EVENING
     Route: 058
  3. ANTIHYPERTENSIVES [Concomitant]
     Indication: HYPERTENSION
     Dosage: UNK UNK, 3/D
     Route: 048
  4. FERRO SANOL [Concomitant]
     Indication: ANAEMIA
     Dosage: UNK UNK, 2/D
     Route: 048
  5. CALCIUM ACETATE [Concomitant]
     Indication: RENAL FAILURE
     Dosage: UNK, 3/D

REACTIONS (1)
  - ANAEMIA [None]
